FAERS Safety Report 22357893 (Version 5)
Quarter: 2024Q1

REPORT INFORMATION
  Report Type: Report from Study
  Country: CA (occurrence: CA)
  Receive Date: 20230524
  Receipt Date: 20240202
  Transmission Date: 20240410
  Serious: Yes (Hospitalization, Other)
  Sender: FDA-Public Use
  Company Number: CA-JNJFOC-20230239812

PATIENT
  Age: 15 Year
  Sex: Male
  Weight: 51 kg

DRUGS (2)
  1. REMICADE [Suspect]
     Active Substance: INFLIXIMAB
     Indication: Crohn^s disease
     Dosage: THE PATIENT WAS REBOOKED TO 28-FEB-2023. EXPIRY DATE: 28-FEB-2026
     Route: 041
  2. REMICADE [Suspect]
     Active Substance: INFLIXIMAB
     Route: 041

REACTIONS (4)
  - Central nervous system infection [Unknown]
  - Sinusitis [Recovering/Resolving]
  - Abscess [Recovering/Resolving]
  - Ear operation [Unknown]

NARRATIVE: CASE EVENT DATE: 20230301
